FAERS Safety Report 6267005-X (Version None)
Quarter: 2009Q3

REPORT INFORMATION
  Report Type: 
  Country: None (occurrence: None)
  Receive Date: 20090714
  Receipt Date: 20090706
  Transmission Date: 20100115
  Serious: Yes (Hospitalization)
  Sender: FDA-Public Use
  Company Number: US-AMGEN-QUU354527

PATIENT
  Sex: Female

DRUGS (1)
  1. ENBREL [Suspect]
     Indication: PSORIATIC ARTHROPATHY
     Route: 058
     Dates: start: 20020101

REACTIONS (3)
  - INTRAOCULAR LENS COMPLICATION [None]
  - INTRAOCULAR LENS DISLOCATION [None]
  - SPINAL COLUMN STENOSIS [None]
